FAERS Safety Report 20874042 (Version 1)
Quarter: 2022Q2

REPORT INFORMATION
  Report Type: Spontaneous
  Country: US (occurrence: US)
  Receive Date: 20220525
  Receipt Date: 20220525
  Transmission Date: 20220720
  Serious: No
  Sender: FDA-Public Use
  Company Number: US-BRISTOL-MYERS SQUIBB COMPANY-2022-031830

PATIENT
  Age: 69 Year
  Sex: Male
  Weight: 83.901 kg

DRUGS (1)
  1. POMALYST [Suspect]
     Active Substance: POMALIDOMIDE
     Indication: Plasma cell myeloma
     Dosage: FREQ: DAILY 21/28
     Route: 048

REACTIONS (2)
  - Peripheral swelling [Unknown]
  - Oedema [Unknown]
